FAERS Safety Report 8149876-5 (Version None)
Quarter: 2012Q1

REPORT INFORMATION
  Report Type: 
  Country: None (occurrence: None)
  Receive Date: 20120218
  Receipt Date: 20111213
  Transmission Date: 20120608
  Serious: No
  Sender: FDA-Public Use
  Company Number: US-ALLERGAN-1116355US

PATIENT
  Age: 52 Year

DRUGS (3)
  1. BOTOX COSMETIC [Suspect]
     Indication: SKIN WRINKLING
     Dosage: 20 UNITS, SINGLE
     Route: 030
     Dates: start: 20111006, end: 20111006
  2. BOTOX COSMETIC [Suspect]
     Dosage: 26 UNK, SINGLE
     Route: 030
     Dates: start: 20111207, end: 20111207
  3. BOTOX COSMETIC [Suspect]
     Dosage: 14 UNK, SINGLE
     Route: 030
     Dates: start: 20111103, end: 20111103

REACTIONS (1)
  - DRUG INEFFECTIVE [None]
